FAERS Safety Report 22146768 (Version 2)
Quarter: 2023Q1

REPORT INFORMATION
  Report Type: Spontaneous
  Country: JP (occurrence: JP)
  Receive Date: 20230328
  Receipt Date: 20230331
  Transmission Date: 20230417
  Serious: Yes (Hospitalization, Other)
  Sender: FDA-Public Use
  Company Number: JP-MLMSERVICE-20230316-4166817-1

PATIENT
  Age: 50 Year
  Sex: Female

DRUGS (3)
  1. METHOTREXATE SODIUM [Suspect]
     Active Substance: METHOTREXATE SODIUM
     Indication: Rheumatoid arthritis
     Dosage: 4 MG, WEEKLY
     Route: 048
  2. ADALIMUMAB [Suspect]
     Active Substance: ADALIMUMAB
     Indication: Rheumatoid arthritis
     Dosage: 40 MG, BIWEEKLY
     Route: 058
  3. ALOGLIPTIN BENZOATE [Concomitant]
     Active Substance: ALOGLIPTIN BENZOATE
     Indication: Type 2 diabetes mellitus
     Dosage: 25 MG, 1X/DAY

REACTIONS (4)
  - Hepatocellular carcinoma [Recovered/Resolved]
  - Non-alcoholic steatohepatitis [Recovered/Resolved]
  - Autoimmune hepatitis [Recovered/Resolved]
  - Thrombocytopenia [Recovered/Resolved]
